FAERS Safety Report 6417234-7 (Version None)
Quarter: 2009Q4

REPORT INFORMATION
  Report Type: 
  Country: None (occurrence: None)
  Receive Date: 20091028
  Receipt Date: 20091027
  Transmission Date: 20100525
  Serious: Yes (Hospitalization)
  Sender: FDA-Public Use
  Company Number: FR-JNJFOC-20090802979

PATIENT
  Sex: Male

DRUGS (8)
  1. IXPRIM [Suspect]
     Indication: PAIN
     Route: 048
  2. TAVANIC [Suspect]
     Indication: MORGANELLA INFECTION
     Route: 042
     Dates: start: 20090214, end: 20090226
  3. TAZOCILLINE [Suspect]
     Indication: MORGANELLA INFECTION
     Route: 042
  4. XATRAL [Concomitant]
     Route: 065
  5. TAHOR [Concomitant]
     Route: 065
  6. CALCIPARINE [Concomitant]
     Route: 065
  7. ASPEGIC 1000 [Concomitant]
     Route: 065
  8. FORLAX [Concomitant]
     Route: 065

REACTIONS (2)
  - LEUKOPENIA [None]
  - NEUTROPENIA [None]
